FAERS Safety Report 21298476 (Version 1)
Quarter: 2022Q3

REPORT INFORMATION
  Report Type: Spontaneous
  Country: US (occurrence: None)
  Receive Date: 20220903
  Receipt Date: 20220903
  Transmission Date: 20221027
  Serious: Yes (Other)
  Sender: FDA-Public Use
  Company Number: None

PATIENT
  Age: 31 Year
  Sex: Female

DRUGS (5)
  1. XCOPRI [Suspect]
     Active Substance: CENOBAMATE
     Indication: Epilepsy
     Dates: start: 20220729
  2. LAMOTRIGINE [Concomitant]
     Active Substance: LAMOTRIGINE
     Dates: start: 20090930
  3. OXCARBAZEPINE [Concomitant]
     Active Substance: OXCARBAZEPINE
     Dates: start: 20210802
  4. Cyanocobalamin 1,000 mcg/mL [Concomitant]
     Dates: start: 20190930
  5. NARATRIPTAN [Concomitant]
     Active Substance: NARATRIPTAN HYDROCHLORIDE

REACTIONS (10)
  - Tenderness [None]
  - Abdominal pain lower [None]
  - Diarrhoea [None]
  - Nausea [None]
  - Haematemesis [None]
  - Dysmenorrhoea [None]
  - Pain [None]
  - Heavy menstrual bleeding [None]
  - Increased tendency to bruise [None]
  - Contusion [None]

NARRATIVE: CASE EVENT DATE: 20220802
